FAERS Safety Report 8005263-1 (Version None)
Quarter: 2011Q4

REPORT INFORMATION
  Report Type: 
  Country: None (occurrence: None)
  Receive Date: 20111223
  Receipt Date: 20111222
  Transmission Date: 20120403
  Serious: Yes (Death)
  Sender: FDA-Public Use
  Company Number: PHEH2011US012344

PATIENT
  Sex: Male

DRUGS (13)
  1. HUMALOG MIX 50/50 PEN [Concomitant]
  2. OXYCONTIN [Concomitant]
     Dosage: 10 MG, UNK
  3. ASPIRIN [Concomitant]
     Dosage: 81 MG, UNK
  4. AFINITOR [Suspect]
     Dosage: 10 MG, DAILY
     Route: 048
  5. METOPROLOL SUCCINATE [Concomitant]
     Dosage: 25 MG, UNK
  6. PROCHLORPERAZINE [Concomitant]
     Dosage: 10 MG, UNK
  7. IRON [Concomitant]
     Dosage: 18 MG, UNK
  8. ONDANSETRON [Concomitant]
     Dosage: 4 MG, UNK
  9. GABAPENTIN [Concomitant]
     Dosage: 100 MG, UNK
  10. PRILOSEC [Concomitant]
     Dosage: 10 MG, UNK
  11. CARISOPRODOL [Concomitant]
     Dosage: 250 MG, UNK
  12. HUMIRA [Concomitant]
     Dosage: 40 MG,/ 0.8
  13. LIPITOR [Concomitant]
     Dosage: 10 MG, UNK

REACTIONS (1)
  - DEATH [None]
